FAERS Safety Report 9496358 (Version 1)
Quarter: 2013Q3

REPORT INFORMATION
  Report Type: Spontaneous
  Country: US (occurrence: None)
  Receive Date: 20130829
  Receipt Date: 20130829
  Transmission Date: 20140515
  Serious: Yes (Death)
  Sender: FDA-Public Use
  Company Number: 1862500

PATIENT
  Age: 6 Year
  Sex: Female

DRUGS (2)
  1. DEXTROSE [Suspect]
     Indication: POSTOPERATIVE CARE
     Route: 041
  2. DEXTROSE [Suspect]
     Indication: DRUG THERAPY
     Route: 041

REACTIONS (7)
  - Incorrect drug administration rate [None]
  - Hyponatraemia [None]
  - Water intoxication [None]
  - Brain oedema [None]
  - Bradycardia [None]
  - Drug dispensing error [None]
  - Wrong technique in drug usage process [None]
